FAERS Safety Report 6064172-8 (Version None)
Quarter: 2009Q1

REPORT INFORMATION
  Report Type: 
  Country: None (occurrence: None)
  Receive Date: 20090204
  Receipt Date: 20090107
  Transmission Date: 20090719
  Serious: Yes (Other)
  Sender: FDA-Public Use
  Company Number: US-PFIZER INC-2009152003

PATIENT
  Sex: Male
  Weight: 83.914 kg

DRUGS (3)
  1. CELEBREX [Suspect]
     Indication: MUSCULOSKELETAL PAIN
     Route: 048
     Dates: end: 20020101
  2. LIPITOR [Suspect]
     Indication: BLOOD CHOLESTEROL INCREASED
     Route: 048
     Dates: start: 19970101
  3. ZOCOR [Concomitant]

REACTIONS (1)
  - MYOCARDIAL INFARCTION [None]
